FAERS Safety Report 20487713 (Version 2)
Quarter: 2022Q1

REPORT INFORMATION
  Report Type: Spontaneous
  Country: US (occurrence: US)
  Receive Date: 20220218
  Receipt Date: 20220331
  Transmission Date: 20220423
  Serious: Yes (Other)
  Sender: FDA-Public Use
  Company Number: US-CELLTRION INC.-2022US001626

PATIENT

DRUGS (2)
  1. TRUXIMA [Suspect]
     Active Substance: RITUXIMAB-ABBS
     Indication: Dermatomyositis
     Dosage: 1000 MG ONCE WEEK 0
     Dates: start: 20220120
  2. TRUXIMA [Suspect]
     Active Substance: RITUXIMAB-ABBS
     Dosage: 1000 MG ONCE WEEK 2
     Dates: start: 20220204

REACTIONS (2)
  - Dermatomyositis [Unknown]
  - Off label use [Unknown]

NARRATIVE: CASE EVENT DATE: 20220120
